FAERS Safety Report 11345339 (Version 1)
Quarter: 2015Q3

REPORT INFORMATION
  Report Type: Report from Study
  Country: US (occurrence: US)
  Receive Date: 20150806
  Receipt Date: 20150806
  Transmission Date: 20151125
  Serious: No
  Sender: FDA-Public Use
  Company Number: US-ABBVIE-15P-163-1410560-00

PATIENT
  Age: 62 Year
  Sex: Female

DRUGS (9)
  1. DEFLECT [Concomitant]
     Indication: PRODUCT USED FOR UNKNOWN INDICATION
  2. DGL [Concomitant]
     Indication: PRODUCT USED FOR UNKNOWN INDICATION
  3. SYNTHROID [Concomitant]
     Active Substance: LEVOTHYROXINE SODIUM
     Indication: PRODUCT USED FOR UNKNOWN INDICATION
  4. VITAMIN C [Concomitant]
     Active Substance: ASCORBIC ACID
     Indication: PRODUCT USED FOR UNKNOWN INDICATION
  5. ZYRTEC [Concomitant]
     Active Substance: CETIRIZINE HYDROCHLORIDE
     Indication: PRODUCT USED FOR UNKNOWN INDICATION
  6. PHYTOCALCIUM [Concomitant]
     Indication: PRODUCT USED FOR UNKNOWN INDICATION
  7. VIEKIRA PAK [Suspect]
     Active Substance: DASABUVIR\OMBITASVIR\PARITAPREVIR\RITONAVIR
     Indication: HEPATITIS C
     Dosage: 2 PINK TABS W/ 1 BEIGE TAB IN AM; 1 BEIGE TAB IN PM
     Route: 048
     Dates: start: 20150521
  8. FLUTICASONE [Concomitant]
     Active Substance: FLUTICASONE\FLUTICASONE PROPIONATE
     Indication: PRODUCT USED FOR UNKNOWN INDICATION
  9. LIQUID LIVER FUNCTION [Concomitant]
     Indication: PRODUCT USED FOR UNKNOWN INDICATION

REACTIONS (12)
  - Tongue disorder [Unknown]
  - Disturbance in attention [Unknown]
  - Memory impairment [Unknown]
  - Vision blurred [Unknown]
  - Balance disorder [Unknown]
  - Decreased appetite [Unknown]
  - Fluid intake reduced [Unknown]
  - Drug dose omission [Unknown]
  - Speech disorder [Unknown]
  - Dyspnoea [Unknown]
  - Faeces pale [Unknown]
  - Emotional disorder [Unknown]

NARRATIVE: CASE EVENT DATE: 20150615
